FAERS Safety Report 5877479-1 (Version None)
Quarter: 2008Q3

REPORT INFORMATION
  Report Type: 
  Country: None (occurrence: None)
  Receive Date: 20080909
  Receipt Date: 20080822
  Transmission Date: 20090109
  Serious: Yes (Other)
  Sender: FDA-Public Use
  Company Number: DSA_62256_2008

PATIENT
  Sex: Female
  Weight: 47.1741 kg

DRUGS (4)
  1. MYSOLINE [Suspect]
     Indication: CONVULSION
     Dosage: (250 MG TID ORAL), (250 MG TID ORAL)
     Route: 048
     Dates: end: 20080701
  2. MYSOLINE [Suspect]
     Indication: CONVULSION
     Dosage: (250 MG TID ORAL), (250 MG TID ORAL)
     Route: 048
     Dates: start: 20080701
  3. DILANTIN [Concomitant]
  4. VALIUM [Concomitant]

REACTIONS (3)
  - CONVULSION [None]
  - DRUG INEFFECTIVE [None]
  - THERAPEUTIC RESPONSE UNEXPECTED WITH DRUG SUBSTITUTION [None]
